FAERS Safety Report 24182133 (Version 3)
Quarter: 2025Q3

REPORT INFORMATION
  Report Type: Report from Study
  Country: MX (occurrence: MX)
  Receive Date: 20240807
  Receipt Date: 20250811
  Transmission Date: 20251021
  Serious: Yes (Hospitalization, Other)
  Sender: NOVARTIS
  Company Number: MX-002147023-NVSC2024MX159333

PATIENT
  Sex: Male
  Weight: 63 kg

DRUGS (5)
  1. TASIGNA [Suspect]
     Active Substance: NILOTINIB
     Indication: Chronic myeloid leukaemia
     Dosage: 2 DOSAGE FORM OF 200 MG, Q12H
     Route: 048
     Dates: start: 2006
  2. TASIGNA [Suspect]
     Active Substance: NILOTINIB
     Dosage: 2 DOSAGE FORM OF 200 MG, Q12H
     Route: 048
  3. TASIGNA [Suspect]
     Active Substance: NILOTINIB
     Dosage: 4 DOSAGE FORM, QD
     Route: 048
     Dates: start: 2007
  4. IMATINIB [Suspect]
     Active Substance: IMATINIB
     Indication: Chronic myeloid leukaemia
     Route: 048
  5. IMATINIB [Suspect]
     Active Substance: IMATINIB
     Dosage: UNK, Q12H, 2 OF 100 MG
     Route: 048
     Dates: start: 2004

REACTIONS (9)
  - Abdominal pain upper [Recovered/Resolved]
  - Diverticular perforation [Recovered/Resolved with Sequelae]
  - Gastrointestinal necrosis [Recovered/Resolved with Sequelae]
  - Gastrointestinal inflammation [Not Recovered/Not Resolved]
  - Constipation [Unknown]
  - Gait inability [Not Recovered/Not Resolved]
  - Epigastric discomfort [Unknown]
  - Diarrhoea [Unknown]
  - Insomnia [Unknown]

NARRATIVE: CASE EVENT DATE: 20240101
